FAERS Safety Report 4968241-2 (Version None)
Quarter: 2006Q2

REPORT INFORMATION
  Report Type: 
  Country: None (occurrence: None)
  Receive Date: 20060410
  Receipt Date: 20060407
  Transmission Date: 20061013
  Serious: Yes (Other)
  Sender: FDA-Public Use
  Company Number: 200611880EU

PATIENT
  Age: 25 Year
  Sex: Male

DRUGS (1)
  1. NICODERM CQ [Suspect]
     Dosage: 1PAT PER DAY
     Route: 062
     Dates: start: 20060201

REACTIONS (2)
  - TOOTHACHE [None]
  - TRISMUS [None]
